FAERS Safety Report 11171100 (Version 1)
Quarter: 2015Q2

REPORT INFORMATION
  Report Type: Spontaneous
  Country: US (occurrence: None)
  Receive Date: 20150605
  Receipt Date: 20150605
  Transmission Date: 20150821
  Serious: No
  Sender: FDA-Public Use
  Company Number: None

PATIENT
  Age: 66 Year
  Sex: Male
  Weight: 81.65 kg

DRUGS (1)
  1. CREST PRO-HEALTH (CETYLPYRIDINIUM) [Suspect]
     Active Substance: CETYLPYRIDINIUM CHLORIDE
     Indication: DENTAL DISORDER PROPHYLAXIS
     Dates: start: 20150529, end: 20150529

REACTIONS (2)
  - Abdominal discomfort [None]
  - Product quality issue [None]

NARRATIVE: CASE EVENT DATE: 20150528
